FAERS Safety Report 6413820-9 (Version None)
Quarter: 2009Q4

REPORT INFORMATION
  Report Type: 
  Country: None (occurrence: None)
  Receive Date: 20091026
  Receipt Date: 20091022
  Transmission Date: 20100525
  Serious: Yes (Other)
  Sender: FDA-Public Use
  Company Number: A0568301A

PATIENT

DRUGS (11)
  1. LAMICTAL [Suspect]
     Indication: BIPOLAR DISORDER
     Dosage: 200MG PER DAY
     Route: 048
  2. NEXIUM [Suspect]
     Dosage: 40MG UNKNOWN
     Route: 065
  3. TRIAMTERENE AND HYDROCHLOROTHIAZIDE [Suspect]
     Route: 065
  4. RISPERDAL [Suspect]
     Dosage: 3MG UNKNOWN
     Route: 065
  5. MS CONTIN [Suspect]
     Dosage: 15MG TWICE PER DAY
     Route: 065
  6. CLONIDINE [Suspect]
     Dosage: .3MG TWICE PER DAY
     Route: 065
  7. LORAZEPAM [Suspect]
     Dosage: 1MG AS REQUIRED
     Route: 065
  8. FOLIC ACID [Suspect]
     Dosage: 400MG UNKNOWN
     Route: 065
  9. ASPIRIN [Suspect]
  10. BENADRYL [Concomitant]
  11. IBUPROFEN [Concomitant]

REACTIONS (5)
  - AMNESIA [None]
  - APHASIA [None]
  - CONFUSIONAL STATE [None]
  - DYSPNOEA [None]
  - MALAISE [None]
